FAERS Safety Report 9238134 (Version 1)
Quarter: 2013Q1

REPORT INFORMATION
  Report Type: Spontaneous
  Country: US (occurrence: None)
  Receive Date: 20121106
  Receipt Date: 20121106
  Transmission Date: 20140127
  Serious: No
  Sender: FDA-Public Use
  Company Number: 1000037838

PATIENT
  Age: 63 Year
  Sex: Female

DRUGS (5)
  1. DALIRESP [Suspect]
     Indication: ASTHMA
     Dates: start: 20120809, end: 20120809
  2. VIIBRYD [Suspect]
     Indication: DEPRESSION
     Route: 048
     Dates: start: 20120806
  3. ADVAIR (SERETIDE) [Concomitant]
  4. ALBUTEROL (ALBUTEROL) [Concomitant]
  5. PRIMIDONE [Concomitant]

REACTIONS (3)
  - Hypersensitivity [None]
  - Off label use [None]
  - Drug interaction [None]
